FAERS Safety Report 4647010-7 (Version None)
Quarter: 2005Q2

REPORT INFORMATION
  Report Type: 
  Country: None (occurrence: None)
  Receive Date: 20050331
  Receipt Date: 20050207
  Transmission Date: 20051028
  Serious: No
  Sender: FDA-Public Use
  Company Number: 05P-163-0289679

PATIENT
  Age: 82 Year
  Sex: Female
  Weight: 68.0396 kg

DRUGS (12)
  1. HUMIRA [Suspect]
     Indication: RHEUMATOID ARTHRITIS
     Dosage: 40 MG, 1 IN 2 WK, SUBCUTANEOUS
     Route: 058
     Dates: start: 20040101
  2. LEVOTHYROXINE SODIUM [Concomitant]
  3. RALOXIFENE HCL [Concomitant]
  4. ESOMEPRAZOLE [Concomitant]
  5. SINGULAIR [Concomitant]
  6. METOCLOPRAMIDE [Concomitant]
  7. FOLIC ACID [Concomitant]
  8. METHOTREXATE [Concomitant]
  9. TRAMADOL HCL [Concomitant]
  10. FLUTICASONE PROPIONATE [Concomitant]
  11. MULTI-VITAMINS [Concomitant]
  12. CALCIUM GLUCONATE [Concomitant]

REACTIONS (3)
  - ARTHRITIS [None]
  - BRONCHITIS [None]
  - SINUSITIS [None]
